FAERS Safety Report 4622178-7 (Version None)
Quarter: 2005Q1

REPORT INFORMATION
  Report Type: 
  Country: None (occurrence: None)
  Receive Date: 20050329
  Receipt Date: 20050321
  Transmission Date: 20050727
  Serious: Yes (Life-Threatening)
  Sender: FDA-Public Use
  Company Number: 2005GB00580

PATIENT
  Age: 78 Year
  Sex: Male
  Weight: 62 kg

DRUGS (7)
  1. CRESTOR [Suspect]
     Indication: DIABETES MELLITUS NON-INSULIN-DEPENDENT
     Dosage: 10 MG DAILY PO
     Route: 048
     Dates: start: 20040201, end: 20040901
  2. AVANDIA [Suspect]
     Indication: DIABETES MELLITUS NON-INSULIN-DEPENDENT
     Dosage: 8 MG DAILY PO
     Route: 048
     Dates: start: 20020901, end: 20040901
  3. METFORMIN HCL [Concomitant]
  4. ASPIRIN [Concomitant]
  5. GLUCOBAY [Concomitant]
  6. IBUPROFEN [Concomitant]
  7. GLICLAZIDE [Concomitant]

REACTIONS (6)
  - CHOLESTASIS [None]
  - DECREASED APPETITE [None]
  - DRUG INTERACTION [None]
  - HEPATIC FAILURE [None]
  - HEPATITIS [None]
  - WEIGHT DECREASED [None]
